FAERS Safety Report 8935142 (Version 1)
Quarter: 2012Q4

REPORT INFORMATION
  Report Type: 
  Country: US (occurrence: US)
  Receive Date: 20121129
  Receipt Date: 20121129
  Transmission Date: 20130627
  Serious: Yes (Hospitalization)
  Sender: FDA-Public Use
  Company Number: US-B.I. PHARMACEUTICALS,INC./RIDGEFIELD-2012-BI-01245BP

PATIENT
  Sex: Female
  Weight: 65 kg

DRUGS (3)
  1. PRADAXA [Suspect]
     Indication: ATRIAL FIBRILLATION
     Dosage: 150 mg
     Route: 048
     Dates: start: 2011
  2. PRADAXA [Suspect]
     Dosage: 300 mg
     Route: 048
     Dates: start: 201209
  3. PRADAXA [Suspect]
     Dosage: 150 mg
     Route: 048
     Dates: start: 20121121

REACTIONS (2)
  - Pericarditis [Recovered/Resolved]
  - Atrial fibrillation [Recovered/Resolved]
